FAERS Safety Report 6658635-1 (Version None)
Quarter: 2010Q1

REPORT INFORMATION
  Report Type: 
  Country: None (occurrence: None)
  Receive Date: 20100330
  Receipt Date: 20100326
  Transmission Date: 20100710
  Serious: Yes (Hospitalization)
  Sender: FDA-Public Use
  Company Number: US-BRISTOL-MYERS SQUIBB COMPANY-15038235

PATIENT
  Age: 64 Year
  Sex: Male

DRUGS (11)
  1. COUMADIN [Suspect]
  2. LETAIRIS [Suspect]
     Indication: PULMONARY ARTERIAL HYPERTENSION
     Route: 048
     Dates: start: 20090224
  3. REVATIO [Concomitant]
  4. DIGOXIN [Concomitant]
  5. PRED FORTE [Concomitant]
  6. OMEPRAZOLE [Concomitant]
  7. HYDROXYCHLOROQUINE SULFATE [Concomitant]
  8. BENADRYL [Concomitant]
  9. ZYMAR [Concomitant]
  10. XIBROM [Concomitant]
  11. K-DUR [Concomitant]

REACTIONS (1)
  - TRANSFUSION [None]
